FAERS Safety Report 6132838-7 (Version None)
Quarter: 2009Q1

REPORT INFORMATION
  Report Type: 
  Country: None (occurrence: None)
  Receive Date: 20090324
  Receipt Date: 20090324
  Transmission Date: 20090719
  Serious: Yes (Life-Threatening)
  Sender: FDA-Public Use
  Company Number: None

PATIENT
  Age: 7 Year
  Sex: Female

DRUGS (2)
  1. DIVALPROEX SODIUM [Suspect]
     Indication: CONVULSION
     Dosage: 2 CAPSULES ORALLY TWICE A DAY
     Route: 048
     Dates: start: 20090308
  2. KEPPRA ORAL SOLUTION [Concomitant]

REACTIONS (1)
  - CONVULSION [None]
